FAERS Safety Report 16130654 (Version 1)
Quarter: 2019Q1

REPORT INFORMATION
  Report Type: Spontaneous
  Country: US (occurrence: US)
  Receive Date: 20190328
  Receipt Date: 20190328
  Transmission Date: 20190418
  Serious: No
  Sender: FDA-Public Use
  Company Number: US-TEVA-2019-US-1028910

PATIENT
  Sex: Male

DRUGS (1)
  1. GLIPIZIDE. [Suspect]
     Active Substance: GLIPIZIDE
     Dosage: TABLETS - EXTENDED / SUSTAINED RELEASE

REACTIONS (2)
  - Malaise [Unknown]
  - Blood glucose increased [Unknown]
